FAERS Safety Report 25083285 (Version 1)
Quarter: 2025Q1

REPORT INFORMATION
  Report Type: Spontaneous
  Country: AR (occurrence: AR)
  Receive Date: 20250317
  Receipt Date: 20250317
  Transmission Date: 20250409
  Serious: Yes (Other)
  Sender: MACLEODS
  Company Number: AR-MLMSERVICE-20250227-PI432482-00130-1

PATIENT

DRUGS (1)
  1. TENOFOVIR [Suspect]
     Active Substance: TENOFOVIR
     Indication: HIV infection
     Route: 065

REACTIONS (3)
  - Porphyria acute [Unknown]
  - Condition aggravated [Unknown]
  - Drug-disease interaction [Unknown]
